FAERS Safety Report 10165967 (Version 2)
Quarter: 2014Q2

REPORT INFORMATION
  Report Type: Spontaneous
  Country: US (occurrence: US)
  Receive Date: 20140511
  Receipt Date: 20140511
  Transmission Date: 20141212
  Serious: Yes (Death)
  Sender: FDA-Public Use
  Company Number: US-HORIZON-DUE-0028-2014

PATIENT
  Age: 63 Year
  Sex: Female

DRUGS (6)
  1. DUEXIS [Suspect]
     Indication: ARTHRALGIA
     Dates: start: 20140331
  2. AMBIEN [Concomitant]
  3. CARVEDILOL [Concomitant]
  4. COMBIVENT RESPIMAT [Concomitant]
  5. METFORMIN [Concomitant]
  6. ASA [Concomitant]

REACTIONS (1)
  - Gastrointestinal haemorrhage [Fatal]
